FAERS Safety Report 15294835 (Version 1)
Quarter: 2018Q3

REPORT INFORMATION
  Report Type: Report from Study
  Country: US (occurrence: US)
  Receive Date: 20180820
  Receipt Date: 20180820
  Transmission Date: 20181010
  Serious: No
  Sender: FDA-Public Use
  Company Number: US-ACADIA PHARMACEUTICALS INC.-ACA-2018-009608

PATIENT
  Age: 63 Year
  Sex: Female

DRUGS (15)
  1. NUPLAZID [Suspect]
     Active Substance: PIMAVANSERIN TARTRATE
     Indication: PARKINSON^S DISEASE PSYCHOSIS
  2. SINEMET [Concomitant]
     Active Substance: CARBIDOPA\LEVODOPA
     Dosage: 10?100 MG, THREE TIMES DAILY
     Route: 048
  3. REMERON [Concomitant]
     Active Substance: MIRTAZAPINE
     Indication: PRODUCT USED FOR UNKNOWN INDICATION
     Dosage: 30 MG, QD AT BEDTIME
     Route: 048
     Dates: start: 20180223
  4. BONIVA [Concomitant]
     Active Substance: IBANDRONATE SODIUM
     Indication: PRODUCT USED FOR UNKNOWN INDICATION
     Dosage: 3 MG/3 ML SOLUTION 1 INTRAVENOUS Q3 MONTH
     Route: 042
     Dates: start: 20170220
  5. MIRTAZAPINE. [Concomitant]
     Active Substance: MIRTAZAPINE
     Indication: PRODUCT USED FOR UNKNOWN INDICATION
     Dosage: 15 MG, ONE TABLET AT BEDTIME FOR 90 DAYS
     Route: 048
     Dates: start: 20180720
  6. RYTARY [Concomitant]
     Active Substance: CARBIDOPA\LEVODOPA
     Indication: PRODUCT USED FOR UNKNOWN INDICATION
     Dosage: 23.75 MG?95 MG 3 ORAL EVERY MORNING
     Route: 048
  7. NUPLAZID [Suspect]
     Active Substance: PIMAVANSERIN TARTRATE
     Indication: HALLUCINATION
     Dosage: 34 MG, QD
     Route: 065
     Dates: start: 20180626
  8. NUPLAZID [Suspect]
     Active Substance: PIMAVANSERIN TARTRATE
     Indication: DELUSION
  9. ALENDRONATE SODIUM. [Concomitant]
     Active Substance: ALENDRONATE SODIUM
     Indication: PRODUCT USED FOR UNKNOWN INDICATION
     Dosage: 70 MG, 1 TABLET WEEKLY FOR 30 DAYS (LOCAL PRESCRIPTION) FOR 90 DAYS
     Dates: start: 20170410
  10. ALENDRONATE SODIUM. [Concomitant]
     Active Substance: ALENDRONATE SODIUM
     Dosage: 70 MG, ONE TABLET WEEKLY FOR 30 DAYS
     Route: 048
     Dates: start: 20170608
  11. CALCIUM [Concomitant]
     Active Substance: CALCIUM
     Indication: PRODUCT USED FOR UNKNOWN INDICATION
     Dosage: 500 MG, QD
     Route: 048
     Dates: start: 20140709
  12. SERTRALINE HCL [Concomitant]
     Active Substance: SERTRALINE HYDROCHLORIDE
     Indication: PRODUCT USED FOR UNKNOWN INDICATION
     Dosage: 100 MG, 1.5 TABLET QD
     Route: 048
     Dates: start: 20180223
  13. TRAZODONE HYDROCHLORIDE. [Concomitant]
     Active Substance: TRAZODONE HYDROCHLORIDE
     Indication: PRODUCT USED FOR UNKNOWN INDICATION
     Dosage: 50 MG, 1?2 AT BEDTIME
     Route: 048
     Dates: start: 20180223
  14. SINEMET [Concomitant]
     Active Substance: CARBIDOPA\LEVODOPA
     Indication: PRODUCT USED FOR UNKNOWN INDICATION
     Dosage: 25?100 MG , 1.5 Q3H
     Route: 048
  15. VITAMIN D [Concomitant]
     Active Substance: CHOLECALCIFEROL
     Indication: PRODUCT USED FOR UNKNOWN INDICATION
     Dosage: 2000 UNIT 1 CAPSULE ORAL QD
     Route: 065
     Dates: start: 20140709

REACTIONS (1)
  - Headache [Recovered/Resolved]

NARRATIVE: CASE EVENT DATE: 20180626
